FAERS Safety Report 6974953-1 (Version None)
Quarter: 2010Q3

REPORT INFORMATION
  Report Type: 
  Country: None (occurrence: None)
  Receive Date: 20100909
  Receipt Date: 20090114
  Transmission Date: 20110219
  Serious: No
  Sender: FDA-Public Use
  Company Number: US-WYE-H07712509

PATIENT
  Sex: Female
  Weight: 79.45 kg

DRUGS (6)
  1. PRISTIQ [Suspect]
     Indication: DEPRESSION
     Route: 048
     Dates: start: 20090103
  2. LIPITOR [Concomitant]
  3. LORAZEPAM [Concomitant]
  4. PROZAC [Interacting]
  5. PREVACID [Interacting]
  6. ANASTROZOLE [Concomitant]

REACTIONS (4)
  - ABDOMINAL DISCOMFORT [None]
  - ABDOMINAL PAIN UPPER [None]
  - DRUG INTERACTION [None]
  - NAUSEA [None]
